FAERS Safety Report 4557464-2 (Version None)
Quarter: 2005Q1

REPORT INFORMATION
  Report Type: 
  Country: None (occurrence: None)
  Receive Date: 20050118
  Receipt Date: 20050104
  Transmission Date: 20050727
  Serious: Yes (Hospitalization)
  Sender: FDA-Public Use
  Company Number: 2005004771

PATIENT
  Sex: Female
  Weight: 81.6475 kg

DRUGS (18)
  1. BENADRYL [Suspect]
     Indication: URTICARIA
     Dosage: 2 TABS 2X WEEKLY, ORAL
     Route: 048
     Dates: start: 19850101
  2. TOPIRAMATE [Concomitant]
  3. KETOTIFEN (KETOTIFEN) [Concomitant]
  4. PILOCARPINE HYDROCHLORIDE [Concomitant]
  5. CALCIUM (CALCIUM) [Concomitant]
  6. LEVOTHYROXINE SODIUM (LEVOTHYROXNE SODIUM) [Concomitant]
  7. BUPROPION HYDROCHLORIDE [Concomitant]
  8. CETIRIZINE HCL [Concomitant]
  9. LIDOCAINE HYDROCHLORIDE [Concomitant]
  10. SALBUTMOL (SALBUTAMOL) [Concomitant]
  11. CROMOGLICATE SODIUM (CROMOGLICATE SODIUM) [Concomitant]
  12. HYDROCHLOROTHIAZIDE [Concomitant]
  13. OLOPATADINE HYDROCHLORIDE (OLOPATADINE HYDROCHLORIDE) [Concomitant]
  14. DAPSONE [Concomitant]
  15. TIZANIDINE HCL [Concomitant]
  16. PROGESTERONE [Concomitant]
  17. IBUPROFEN [Concomitant]
  18. HYDROXYCHLOROQUINE PHOSPHATE (HYDROXYCHLOROQUINE PHOSPHATE) [Concomitant]

REACTIONS (6)
  - ANGINA UNSTABLE [None]
  - HAEMATOCRIT DECREASED [None]
  - HAEMOGLOBIN DECREASED [None]
  - PCO2 INCREASED [None]
  - SOMNOLENCE [None]
  - THYROID DISORDER [None]
